FAERS Safety Report 9611938 (Version 2)
Quarter: 2013Q4

REPORT INFORMATION
  Report Type: Spontaneous
  Country: GB (occurrence: GB)
  Receive Date: 20131010
  Receipt Date: 20131010
  Transmission Date: 20140711
  Serious: Yes (Life-Threatening, Hospitalization)
  Sender: FDA-Public Use
  Company Number: GB-TEVA-385879ISR

PATIENT
  Age: 67 Year
  Sex: Female

DRUGS (14)
  1. CIPROFLOXACIN [Suspect]
     Dosage: 1000 MILLIGRAM DAILY;
     Route: 048
     Dates: start: 20110401, end: 20110408
  2. CLARITHROMYCIN [Suspect]
     Dosage: 1000 MILLIGRAM DAILY;
     Route: 048
     Dates: end: 20101102
  3. TRIMETHOPRIM [Suspect]
     Indication: URINARY TRACT INFECTION
     Dosage: 400 MILLIGRAM DAILY;
     Route: 048
     Dates: start: 20110416, end: 20110423
  4. TRIMETHOPRIM [Suspect]
     Indication: URINARY TRACT INFECTION
     Route: 048
     Dates: start: 20110317, end: 20110321
  5. LANSOPRAZOLE [Suspect]
     Dosage: 30 MILLIGRAM DAILY; IN THE MORNING.
     Route: 048
  6. DOXYCYCLINE [Suspect]
     Dosage: 100 MILLIGRAM DAILY;
     Dates: end: 20110502
  7. SALBUTAMOL [Concomitant]
     Dosage: 2-4 PUFFS. INHALED SALBUTAMOL 100MICROGRAMS/DOSE INHALER CFC FREE
  8. BUMETANIDE [Concomitant]
     Dosage: 2 MILLIGRAM DAILY; IN THE MORNING.
     Route: 048
  9. AMLODIPINE [Concomitant]
     Dosage: 10 MILLIGRAM DAILY; EVERY MORNING.
     Route: 048
  10. ASPIRIN [Concomitant]
     Dosage: 75 MILLIGRAM DAILY; EVERY MORNING.
     Route: 048
  11. ATORVASTATIN [Concomitant]
     Dosage: 80 MILLIGRAM DAILY; AT NIGHT.
     Route: 048
  12. BENDROFLUMETHIAZIDE [Concomitant]
     Dosage: 2.5 MILLIGRAM DAILY; IN THE MORNING.
     Route: 048
  13. IRBESARTAN [Concomitant]
     Dosage: 150 MILLIGRAM DAILY; IN THE MORNING.
  14. PARACETAMOL [Concomitant]
     Dosage: DOSE: 1 (UNITS UNSPECIFIED) FOUR TIMES A DAY AS NECESSARY

REACTIONS (2)
  - Clostridium difficile colitis [Recovered/Resolved]
  - Diarrhoea [Unknown]
